FAERS Safety Report 8742065 (Version 4)
Quarter: 2012Q4

REPORT INFORMATION
  Report Type: 
  Country: US (occurrence: US)
  Receive Date: 20120824
  Receipt Date: 20121123
  Transmission Date: 20130627
  Serious: Yes (Death, Other)
  Sender: FDA-Public Use
  Company Number: US-PFIZER INC-2012205842

PATIENT
  Age: 74 Year
  Sex: Male

DRUGS (1)
  1. SUTENT [Suspect]
     Indication: PANCREAS CANCER
     Dosage: 37.5 mg, UNK
     Dates: start: 20111026

REACTIONS (2)
  - Post procedural pneumonia [Fatal]
  - Pneumonia aspiration [Fatal]
